FAERS Safety Report 18915899 (Version 1)
Quarter: 2021Q1

REPORT INFORMATION
  Report Type: Spontaneous
  Country: US (occurrence: US)
  Receive Date: 20210219
  Receipt Date: 20210219
  Transmission Date: 20210420
  Serious: No
  Sender: FDA-Public Use
  Company Number: US-TEVA-2021-US-1881346

PATIENT
  Sex: Female

DRUGS (1)
  1. TREPROSTINIL MDV TEVA [Suspect]
     Active Substance: TREPROSTINIL
     Indication: PULMONARY ARTERIAL HYPERTENSION
     Dosage: DOSE: 17NG/KG/MIN
     Route: 042
     Dates: start: 20201212

REACTIONS (9)
  - Vomiting [Unknown]
  - Discharge [Unknown]
  - Erythema [Unknown]
  - Decreased appetite [Unknown]
  - Diarrhoea [Unknown]
  - Bone pain [Unknown]
  - Infection [Recovered/Resolved]
  - Nausea [Unknown]
  - Pain in extremity [Unknown]
